FAERS Safety Report 6690766-2 (Version None)
Quarter: 2010Q2

REPORT INFORMATION
  Report Type: 
  Country: None (occurrence: None)
  Receive Date: 20100421
  Receipt Date: 20100409
  Transmission Date: 20101027
  Serious: Yes (Other)
  Sender: FDA-Public Use
  Company Number: US-PFIZER INC-2010045012

PATIENT
  Sex: Male
  Weight: 125 kg

DRUGS (2)
  1. CHANTIX [Suspect]
     Indication: SMOKING CESSATION THERAPY
     Dosage: 0.5 MG, 1X/DAY
     Route: 048
     Dates: start: 20100326, end: 20100408
  2. VICODIN [Interacting]
     Indication: BACK DISORDER
     Dosage: UNK

REACTIONS (4)
  - ATTENTION DEFICIT/HYPERACTIVITY DISORDER [None]
  - DRUG INTERACTION [None]
  - PALPITATIONS [None]
  - PARAESTHESIA [None]
